FAERS Safety Report 8816701 (Version 1)
Quarter: 2012Q4

REPORT INFORMATION
  Report Type: Spontaneous
  Country: US (occurrence: None)
  Receive Date: 20120928
  Receipt Date: 20120928
  Transmission Date: 20130627
  Serious: Yes (Other)
  Sender: FDA-Public Use
  Company Number: AUR-APL-2012-04111

PATIENT
  Age: 69 Year
  Sex: Female
  Weight: 96.14 kg

DRUGS (17)
  1. CITALOPRAM (CITALOPRAM) [Suspect]
     Route: 048
  2. METOPROLOL [Suspect]
     Dosage: 50 mg (25 mg, 2 in 1 D)
  3. REVATIO [Suspect]
     Dosage: 60 mg (20 mg, 3 in 1 D)
  4. DILTIAZEM HCL [Suspect]
     Route: 048
  5. OMEGA-3 [Suspect]
  6. CALCIUM CARBONATE [Suspect]
  7. TRACLEER (BOSENTAN) [Suspect]
     Dosage: 250 mg (125 mg, 2 in 1 D)
  8. TRAMADOL AND ACETAMINOPHEN [Suspect]
     Dosage: 6 Dosage forms (2 Dosage forms, 3 in 1 D)
  9. DIGOXIN (DIGOXIN) [Suspect]
  10. METOLAZONE [Suspect]
  11. PEPCID [Suspect]
  12. ALLOPURINOL [Suspect]
     Dosage: half tablet of 300mg daily, Oral
  13. COUMADIN (WARFARIN SODIUM) [Suspect]
  14. KLOR-CON [Suspect]
     Dosage: (20 Milliequivalents, 1D)
  15. IRON [Suspect]
     Route: 048
  16. MAGNESIUM [Suspect]
  17. ZINC [Suspect]

REACTIONS (8)
  - Somnolence [None]
  - Insomnia [None]
  - Restlessness [None]
  - Feeling abnormal [None]
  - Pruritus [None]
  - Swelling [None]
  - Oedema peripheral [None]
  - Urticaria [None]
